FAERS Safety Report 5204155-0 (Version None)
Quarter: 2007Q1

REPORT INFORMATION
  Report Type: 
  Country: None (occurrence: None)
  Receive Date: 20070110
  Receipt Date: 20051219
  Transmission Date: 20070707
  Serious: No
  Sender: FDA-Public Use
  Company Number: US-BRISTOL-MYERS SQUIBB COMPANY-13222526

PATIENT
  Age: 10 Year
  Sex: Female

DRUGS (2)
  1. ABILIFY [Suspect]
     Indication: ABNORMAL BEHAVIOUR
     Dosage: INCREASED TO 5 MG TWICE DAILY ON 11-DEC-2005; RECUED TO 5 MG 1/2 A TABLET DAILY
     Route: 048
     Dates: start: 20051201
  2. LEXAPRO [Concomitant]
     Dates: end: 20051216

REACTIONS (5)
  - AGITATION [None]
  - BRADYPHRENIA [None]
  - MUSCLE TWITCHING [None]
  - SOMNOLENCE [None]
  - TREMOR [None]
